FAERS Safety Report 10401998 (Version 1)
Quarter: 2014Q3

REPORT INFORMATION
  Report Type: Spontaneous
  Country: US (occurrence: None)
  Receive Date: 20140820
  Receipt Date: 20140820
  Transmission Date: 20150326
  Serious: Yes (Other)
  Sender: FDA-Public Use
  Company Number: None

PATIENT
  Age: 63 Year
  Sex: Female
  Weight: 67.7 kg

DRUGS (3)
  1. LEUCOVORIN [Concomitant]
     Active Substance: LEUCOVORIN
  2. DEXTROSE 5% [Concomitant]
     Active Substance: DEXTROSE
  3. OXALIPLATIN. [Suspect]
     Active Substance: OXALIPLATIN
     Indication: OESOPHAGEAL ADENOCARCINOMA
     Route: 042
     Dates: start: 20140819, end: 20140819

REACTIONS (2)
  - Abdominal pain [None]
  - Hypersensitivity [None]

NARRATIVE: CASE EVENT DATE: 20140819
